FAERS Safety Report 24207028 (Version 1)
Quarter: 2024Q3

REPORT INFORMATION
  Report Type: Spontaneous
  Country: US (occurrence: US)
  Receive Date: 20240813
  Receipt Date: 20240813
  Transmission Date: 20241017
  Serious: No
  Sender: SANOFI AVENTIS
  Company Number: US-SA-2024SA235118

PATIENT
  Age: 62 Year
  Sex: Female

DRUGS (5)
  1. KEVZARA [Suspect]
     Active Substance: SARILUMAB
     Indication: Rheumatoid arthritis
     Dosage: 200 MG, QOW
     Route: 058
     Dates: start: 202311
  2. MUCINEX [Concomitant]
     Active Substance: GUAIFENESIN
     Indication: Lower respiratory tract infection
  3. PREDNISONE [Concomitant]
     Active Substance: PREDNISONE
     Indication: Lower respiratory tract infection
  4. PREDNISONE [Concomitant]
     Active Substance: PREDNISONE
     Indication: Cardiomegaly
  5. PEARL [ETHINYLESTRADIOL;LEVONORGESTREL] [Concomitant]
     Indication: Lower respiratory tract infection

REACTIONS (1)
  - Neutrophil count decreased [Unknown]

NARRATIVE: CASE EVENT DATE: 20240601
